FAERS Safety Report 7500550-5 (Version None)
Quarter: 2011Q2

REPORT INFORMATION
  Report Type: 
  Country: None (occurrence: None)
  Receive Date: 20110524
  Receipt Date: 20100419
  Transmission Date: 20111010
  Serious: No
  Sender: FDA-Public Use
  Company Number: US-NOVEN-ALL1-2010-02388

PATIENT

DRUGS (3)
  1. DAYTRANA [Suspect]
     Dosage: UNK MG, 1X/DAY:QD HALF OF A CUT 15 MG PATCH DAILY
     Route: 062
  2. INTUNIV [Concomitant]
     Dosage: 2 MG, 1X/DAY:QD
     Route: 048
  3. INTUNIV [Concomitant]
     Dosage: 1 MG, 1X/DAY:QD
     Route: 048
     Dates: start: 20091101

REACTIONS (2)
  - WRONG TECHNIQUE IN DRUG USAGE PROCESS [None]
  - NO ADVERSE EVENT [None]
